FAERS Safety Report 8916819 (Version 1)
Quarter: 2012Q4

REPORT INFORMATION
  Report Type: 
  Country: JP (occurrence: JP)
  Receive Date: 20121120
  Receipt Date: 20121120
  Transmission Date: 20130627
  Serious: Yes (Life-Threatening)
  Sender: FDA-Public Use
  Company Number: JP-ROCHE-250948

PATIENT
  Age: 1 Year
  Sex: Male
  Weight: 9 kg

DRUGS (8)
  1. ROCEPHIN [Suspect]
     Indication: MENINGITIS
     Route: 041
     Dates: start: 20001201, end: 20001205
  2. CEFOTAXIME [Suspect]
     Indication: MENINGITIS
     Route: 042
     Dates: start: 20001115, end: 20001122
  3. CEFOTAXIME [Suspect]
     Route: 042
     Dates: start: 20001122, end: 20001201
  4. DECADRON [Concomitant]
     Indication: MENINGITIS
     Route: 042
     Dates: start: 20001115, end: 20001119
  5. FUTHAN [Concomitant]
     Indication: PROPHYLAXIS
     Route: 041
     Dates: start: 20001115, end: 20001117
  6. SHIOMARIN [Concomitant]
     Indication: PROPHYLAXIS
     Route: 042
     Dates: start: 20001122, end: 20001201
  7. KENKETSU VENILON-I [Concomitant]
     Indication: INFECTION
     Route: 041
     Dates: start: 20001115, end: 20001115
  8. GLYCEOL [Concomitant]
     Indication: PROPHYLAXIS
     Route: 041
     Dates: start: 20001115, end: 20001117

REACTIONS (4)
  - Liver injury [Recovered/Resolved]
  - Rash [Recovered/Resolved]
  - Pyrexia [Recovered/Resolved]
  - Subdural hygroma [None]
